FAERS Safety Report 12873262 (Version 2)
Quarter: 2017Q1

REPORT INFORMATION
  Report Type: Spontaneous
  Country: US (occurrence: US)
  Receive Date: 20161021
  Receipt Date: 20170105
  Transmission Date: 20170428
  Serious: No
  Sender: FDA-Public Use
  Company Number: US-ASTRAZENECA-2016SF07630

PATIENT
  Sex: Male
  Weight: 86.2 kg

DRUGS (4)
  1. WATER PILL [Suspect]
     Active Substance: UNSPECIFIED INGREDIENT
     Route: 065
  2. VITAMIN B COMPLEX [Concomitant]
     Active Substance: CYANOCOBALAMIN\DEXPANTHENOL\NIACINAMIDE\PYRIDOXINE HYDROCHLORIDE\RIBOFLAVIN 5^-PHOSPHATE SODIUM\THIAMINE HYDROCHLORIDE\VITAMIN B COMPLEX
     Indication: NUTRITIONAL SUPPLEMENTATION
  3. NEXIUM [Suspect]
     Active Substance: ESOMEPRAZOLE MAGNESIUM
     Indication: GASTROOESOPHAGEAL REFLUX DISEASE
     Route: 048
  4. LYRICA [Concomitant]
     Active Substance: PREGABALIN

REACTIONS (13)
  - Liver disorder [Unknown]
  - Weight decreased [Unknown]
  - Renal disorder [Unknown]
  - Dry mouth [Unknown]
  - Joint swelling [Unknown]
  - Flatulence [Not Recovered/Not Resolved]
  - Diarrhoea [Unknown]
  - Peripheral swelling [Unknown]
  - Gait disturbance [Unknown]
  - Diarrhoea [Not Recovered/Not Resolved]
  - Pollakiuria [Unknown]
  - Chromaturia [Unknown]
  - Hypoaesthesia [Not Recovered/Not Resolved]
